FAERS Safety Report 14787143 (Version 4)
Quarter: 2018Q2

REPORT INFORMATION
  Report Type: Report from Study
  Country: CN (occurrence: CN)
  Receive Date: 20180421
  Receipt Date: 20180621
  Transmission Date: 20180711
  Serious: Yes (Other)
  Sender: FDA-Public Use
  Company Number: CN-ROCHE-1933954

PATIENT
  Sex: Female
  Weight: 54 kg

DRUGS (2)
  1. AVASTIN [Suspect]
     Active Substance: BEVACIZUMAB
     Indication: COLORECTAL CANCER
     Dosage: 300 MG AND 200 MG IN TURN
     Route: 041
     Dates: start: 20161120
  2. AVASTIN [Suspect]
     Active Substance: BEVACIZUMAB
     Route: 041

REACTIONS (7)
  - Fracture [Unknown]
  - Limb injury [Recovering/Resolving]
  - Pain in extremity [Unknown]
  - Platelet count decreased [Recovered/Resolved]
  - White blood cell count decreased [Recovered/Resolved]
  - Fall [Unknown]
  - Lymph node pain [Unknown]
